FAERS Safety Report 5921593-9 (Version None)
Quarter: 2008Q4

REPORT INFORMATION
  Report Type: 
  Country: None (occurrence: None)
  Receive Date: 20081016
  Receipt Date: 20081016
  Transmission Date: 20090506
  Serious: Yes (Hospitalization)
  Sender: FDA-Public Use
  Company Number: None

PATIENT
  Sex: Male
  Weight: 77 kg

DRUGS (3)
  1. FLUOROURACIL [Suspect]
     Indication: TONGUE NEOPLASM MALIGNANT STAGE UNSPECIFIED
     Dosage: 600MG/M2 IV QD X 5D
     Route: 042
     Dates: start: 20080914, end: 20080919
  2. HYDREA [Suspect]
     Indication: TONGUE NEOPLASM MALIGNANT STAGE UNSPECIFIED
     Dosage: 500MG PO BID X 5DAYS
     Route: 048
     Dates: start: 20080914, end: 20080919
  3. CETUXIMAB [Suspect]
     Dosage: 250MG/ IV QD
     Route: 042
     Dates: start: 20080527, end: 20080923

REACTIONS (4)
  - ELECTROCARDIOGRAM ST SEGMENT ELEVATION [None]
  - JOINT SWELLING [None]
  - PERICARDITIS [None]
  - PLEURITIC PAIN [None]
